FAERS Safety Report 4739237-0 (Version None)
Quarter: 2005Q3

REPORT INFORMATION
  Report Type: 
  Country: None (occurrence: None)
  Receive Date: 20050810
  Receipt Date: 20050606
  Transmission Date: 20060218
  Serious: No
  Sender: FDA-Public Use
  Company Number: US-GLAXOSMITHKLINE-A0561374A

PATIENT
  Age: 51 Year
  Sex: Female

DRUGS (6)
  1. PAXIL CR [Suspect]
     Indication: DEPRESSION
     Dosage: 12.5MG PER DAY
     Route: 048
  2. WELLBUTRIN XL [Suspect]
     Indication: DEPRESSION
     Dosage: 150MG PER DAY
     Route: 048
     Dates: start: 20050501
  3. ACTIVELLA [Concomitant]
  4. OXYCONTIN [Concomitant]
  5. ZYRTEC [Concomitant]
  6. ATIVAN [Concomitant]

REACTIONS (8)
  - DEPRESSION [None]
  - DIZZINESS [None]
  - DRUG WITHDRAWAL SYNDROME [None]
  - FATIGUE [None]
  - HOT FLUSH [None]
  - HYPERHIDROSIS [None]
  - PANIC ATTACK [None]
  - TREMOR [None]
